FAERS Safety Report 13094264 (Version 1)
Quarter: 2017Q1

REPORT INFORMATION
  Report Type: Spontaneous
  Country: US (occurrence: US)
  Receive Date: 20170106
  Receipt Date: 20170106
  Transmission Date: 20170428
  Serious: Yes (Death, Hospitalization, Other)
  Sender: FDA-Public Use
  Company Number: US-BAYER-2016-246879

PATIENT
  Age: 53 Year
  Sex: Female

DRUGS (4)
  1. CIPROFLOXACIN. [Suspect]
     Active Substance: CIPROFLOXACIN
     Indication: ANTIBIOTIC PROPHYLAXIS
     Dosage: UNK
  2. HEPARIN [Concomitant]
     Active Substance: HEPARIN SODIUM
     Indication: ANTICOAGULANT THERAPY
     Dosage: 500 U, Q1HR
  3. ACETYLSALICYLIC ACID (} 100 MG) [Concomitant]
     Active Substance: ASPIRIN
     Dosage: 300 MG, QD
     Route: 054
  4. BLOOD TRANSFUSION, AUXILIARY PRODUCTS [Concomitant]
     Active Substance: WHOLE BLOOD
     Indication: POST PROCEDURAL HAEMORRHAGE
     Dosage: UNK

REACTIONS (7)
  - Off label use [None]
  - Body temperature increased [None]
  - Carotid artery occlusion [None]
  - Gaze palsy [None]
  - Hemiparesis [None]
  - Cerebrovascular accident [Fatal]
  - Carotid artery dissection [Fatal]
